FAERS Safety Report 5985832-0 (Version None)
Quarter: 2008Q4

REPORT INFORMATION
  Report Type: 
  Country: None (occurrence: None)
  Receive Date: 20081208
  Receipt Date: 20080401
  Transmission Date: 20090506
  Serious: No
  Sender: FDA-Public Use
  Company Number: US-AMGEN-KDL264078

PATIENT
  Sex: Male
  Weight: 106.2 kg

DRUGS (10)
  1. ENBREL [Suspect]
     Indication: ANKYLOSING SPONDYLITIS
     Dates: start: 20071205
  2. GLYBURIDE [Concomitant]
  3. METFORMIN HCL [Concomitant]
  4. INSULIN [Concomitant]
  5. SIMVASTATIN [Concomitant]
  6. LISINOPRIL [Concomitant]
  7. QVAR 40 [Concomitant]
  8. PROVENTIL [Concomitant]
  9. RANITIDINE [Concomitant]
  10. ASPIRIN [Concomitant]

REACTIONS (1)
  - FLATULENCE [None]
